FAERS Safety Report 7991863-1 (Version None)
Quarter: 2011Q4

REPORT INFORMATION
  Report Type: 
  Country: None (occurrence: None)
  Receive Date: 20111219
  Receipt Date: 20111214
  Transmission Date: 20120403
  Serious: Yes (Life-Threatening, Other)
  Sender: FDA-Public Use
  Company Number: PHFR2010GB01125

PATIENT
  Sex: Female

DRUGS (11)
  1. CLOZARIL [Suspect]
     Dosage: 350 MG, QD
     Route: 048
  2. CLOZARIL [Suspect]
     Dosage: 350 MG, QD
     Route: 048
  3. CLOZARIL [Suspect]
     Dosage: 300 MG, QD
     Route: 048
  4. LITHIUM CARBONATE [Concomitant]
     Dosage: 600 MG/DAY
     Route: 048
  5. CLOZARIL [Suspect]
     Dosage: 400 MG, QD
     Route: 048
  6. LEVOTHYROXINE SODIUM [Concomitant]
     Dosage: 75 UG/DAY
  7. CLOZARIL [Suspect]
     Dosage: 600 MG, QD
     Route: 048
     Dates: start: 20110903
  8. CLOZARIL [Suspect]
     Dosage: 450 MG, QD
     Route: 048
  9. CLOZARIL [Suspect]
     Indication: SCHIZOPHRENIA
     Dosage: 75 MG
     Route: 048
     Dates: start: 20100614, end: 20101004
  10. CLOZARIL [Suspect]
     Dosage: 250 MG, DAILY
     Route: 048
  11. ABILIFY [Concomitant]
     Dosage: 15 MG/DAY
     Route: 048

REACTIONS (16)
  - DELUSION [None]
  - STRESS [None]
  - AGITATION [None]
  - APTYALISM [None]
  - MENTAL DISORDER [None]
  - LOWER RESPIRATORY TRACT INFECTION [None]
  - PANIC ATTACK [None]
  - ANTIPSYCHOTIC DRUG LEVEL ABOVE THERAPEUTIC [None]
  - PARANOIA [None]
  - DYSPHAGIA [None]
  - BODY TEMPERATURE INCREASED [None]
  - SYNCOPE [None]
  - PALPITATIONS [None]
  - FEELING ABNORMAL [None]
  - ANXIETY [None]
  - DIZZINESS [None]
